FAERS Safety Report 24017663 (Version 1)
Quarter: 2024Q2

REPORT INFORMATION
  Report Type: Spontaneous
  Country: CA (occurrence: CA)
  Receive Date: 20240627
  Receipt Date: 20240627
  Transmission Date: 20240716
  Serious: Yes (Other)
  Sender: FDA-Public Use
  Company Number: CA-PFIZER INC-202400197145

PATIENT

DRUGS (5)
  1. INFLECTRA [Suspect]
     Active Substance: INFLIXIMAB-DYYB
     Indication: Ankylosing spondylitis
     Dosage: 5 MG/KG, Q 0, 2 , 6 WEEKS, THEN Q 8 WEEKS
     Route: 042
     Dates: start: 20210722
  2. INFLECTRA [Suspect]
     Active Substance: INFLIXIMAB-DYYB
     Dosage: 5 MG/KG
     Route: 042
     Dates: start: 20221205, end: 2023
  3. INFLECTRA [Suspect]
     Active Substance: INFLIXIMAB-DYYB
     Dosage: 5 MG/KG
     Route: 042
     Dates: start: 2023
  4. CELEBREX [Concomitant]
     Active Substance: CELECOXIB
     Dosage: 1 DF
  5. MELOXICAM [Concomitant]
     Active Substance: MELOXICAM
     Dosage: 1 DF

REACTIONS (3)
  - Nephrolithiasis [Unknown]
  - Renal colic [Unknown]
  - Flank pain [Unknown]

NARRATIVE: CASE EVENT DATE: 20240101
